FAERS Safety Report 24843105 (Version 1)
Quarter: 2025Q1

REPORT INFORMATION
  Report Type: Report from Study
  Country: US (occurrence: US)
  Receive Date: 20250115
  Receipt Date: 20250115
  Transmission Date: 20250408
  Serious: No
  Sender: HRA PHARMA
  Company Number: US-ORG100014127-2024000301

PATIENT
  Age: 82 Year
  Sex: Female

DRUGS (22)
  1. LYSODREN [Suspect]
     Active Substance: MITOTANE
     Indication: Adrenal gland cancer
     Dosage: TAKE 2 TABLETS NIGHTLY FOR 10 DAYS
     Route: 048
     Dates: start: 20241004
  2. LYSODREN [Suspect]
     Active Substance: MITOTANE
     Indication: Adrenal gland cancer
     Dosage: TAKE 3 TABLETS NIGHTLY FOR 10 DAYS, THEN TO TAKE 4 TABLETS (2000 MG) NIGHTLY FOR 10 DAYS
     Route: 048
     Dates: start: 20241014
  3. LYSODREN [Suspect]
     Active Substance: MITOTANE
     Indication: Adrenal gland cancer
     Dosage: TAKE 4 TABLETS (2000MG) NIGHTLY
     Route: 048
     Dates: end: 2024
  4. LYSODREN [Suspect]
     Active Substance: MITOTANE
     Indication: Adrenal gland cancer
     Dosage: TAKE 4 TABLETS (2000MG) NIGHTLY
     Route: 048
  5. LYSODREN [Suspect]
     Active Substance: MITOTANE
     Indication: Adrenal gland cancer
     Dosage: 4 TABLETS DAILY SINCE 11/03/2024
     Dates: start: 20241103
  6. LYSODREN [Suspect]
     Active Substance: MITOTANE
     Indication: Adrenal gland cancer
     Dosage: RESTARTED AT 1500MG DAILY
  7. ATENOLOL TAB 25MG [Concomitant]
     Indication: Product used for unknown indication
  8. CALCIUM 600 TAB +D [Concomitant]
     Indication: Product used for unknown indication
  9. DICYCLOMINE CAP 10MG [Concomitant]
     Indication: Product used for unknown indication
  10. ELIQUIS [Concomitant]
     Active Substance: APIXABAN
     Indication: Product used for unknown indication
  11. ESCITALOPRAM TAB 5MG [Concomitant]
     Indication: Product used for unknown indication
  12. Irbesartan tablet 150 mg [Concomitant]
     Indication: Product used for unknown indication
  13. melatonin tablet 5mg [Concomitant]
     Indication: Product used for unknown indication
  14. nifedipine tablet 30mg er [Concomitant]
     Indication: Product used for unknown indication
  15. OMEPRAZOLE [Concomitant]
     Active Substance: OMEPRAZOLE
     Indication: Product used for unknown indication
  16. ondansetron tab 4mg odt [Concomitant]
     Indication: Product used for unknown indication
  17. simvastatin tablet 20mg [Concomitant]
     Indication: Product used for unknown indication
  18. Tylenol tablet 325mg [Concomitant]
     Indication: Product used for unknown indication
  19. Hydrocortisone tablet 10mg [Concomitant]
     Indication: Product used for unknown indication
  20. Levothyroxine tablet 75mg [Concomitant]
     Indication: Product used for unknown indication
  21. IMODIUM [Concomitant]
     Active Substance: LOPERAMIDE HYDROCHLORIDE
     Indication: Diarrhoea
  22. IBUPROFEN [Concomitant]
     Active Substance: IBUPROFEN
     Indication: Product used for unknown indication

REACTIONS (7)
  - Pain in extremity [Unknown]
  - Abdominal pain upper [Not Recovered/Not Resolved]
  - Diarrhoea [Not Recovered/Not Resolved]
  - Fatigue [Not Recovered/Not Resolved]
  - Dizziness [Not Recovered/Not Resolved]
  - Hot flush [Not Recovered/Not Resolved]
  - Confusional state [Unknown]

NARRATIVE: CASE EVENT DATE: 20241006
